FAERS Safety Report 21329403 (Version 1)
Quarter: 2022Q3

REPORT INFORMATION
  Report Type: Spontaneous
  Country: FR (occurrence: FR)
  Receive Date: 20220913
  Receipt Date: 20220913
  Transmission Date: 20221027
  Serious: Yes (Life-Threatening, Other)
  Sender: FDA-Public Use
  Company Number: FR-Accord-277034

PATIENT
  Age: 51 Year

DRUGS (1)
  1. FLUOROURACIL [Suspect]
     Active Substance: FLUOROURACIL
     Indication: Neuroendocrine carcinoma
     Dosage: 50% OF STANDARD DOSE ON DAY 15

REACTIONS (3)
  - Acute kidney injury [Unknown]
  - Tumour lysis syndrome [Unknown]
  - Off label use [Unknown]
